FAERS Safety Report 4348534-2 (Version None)
Quarter: 2004Q2

REPORT INFORMATION
  Report Type: 
  Country: None (occurrence: None)
  Receive Date: 20040427
  Receipt Date: 20040420
  Transmission Date: 20050107
  Serious: Yes (Hospitalization)
  Sender: FDA-Public Use
  Company Number: FR-ROCHE-365170

PATIENT
  Age: 71 Year
  Sex: Female
  Weight: 71 kg

DRUGS (1)
  1. RIVOTRIL [Suspect]
     Indication: DRUG USE FOR UNKNOWN INDICATION
     Route: 048
     Dates: start: 20030707, end: 20030721

REACTIONS (5)
  - ABDOMINAL PAIN [None]
  - DISORIENTATION [None]
  - MEMORY IMPAIRMENT [None]
  - METRORRHAGIA [None]
  - PYREXIA [None]
